FAERS Safety Report 6630716-8 (Version None)
Quarter: 2010Q1

REPORT INFORMATION
  Report Type: 
  Country: None (occurrence: None)
  Receive Date: 20100311
  Receipt Date: 20090601
  Transmission Date: 20100710
  Serious: No
  Sender: FDA-Public Use
  Company Number: US-BIOGENIDEC-2009BI016557

PATIENT
  Age: 52 Year
  Sex: Female

DRUGS (2)
  1. AVONEX [Suspect]
     Indication: MULTIPLE SCLEROSIS
     Route: 030
     Dates: start: 20090301, end: 20090401
  2. AVONEX [Suspect]
     Route: 030
     Dates: start: 20090401

REACTIONS (7)
  - DRY EYE [None]
  - EYE DISCHARGE [None]
  - EYE IRRITATION [None]
  - EYE SWELLING [None]
  - INSOMNIA [None]
  - OCULAR HYPERAEMIA [None]
  - THYROID DISORDER [None]
